FAERS Safety Report 9714225 (Version 2)
Quarter: 2015Q3

REPORT INFORMATION
  Report Type: Spontaneous
  Country: US (occurrence: US)
  Receive Date: 20131126
  Receipt Date: 20150803
  Transmission Date: 20151125
  Serious: No
  Sender: FDA-Public Use
  Company Number: US-GILEAD-2008-0019430

PATIENT
  Age: 76 Year
  Sex: Female
  Weight: 72.57 kg

DRUGS (9)
  1. ASA [Concomitant]
     Active Substance: ASPIRIN
  2. TOPROL XL [Concomitant]
     Active Substance: METOPROLOL SUCCINATE
  3. NEXIUM [Concomitant]
     Active Substance: ESOMEPRAZOLE MAGNESIUM
  4. LETAIRIS [Suspect]
     Active Substance: AMBRISENTAN
     Indication: PULMONARY HYPERTENSION
     Route: 048
     Dates: start: 20071010
  5. REGLAN [Concomitant]
     Active Substance: METOCLOPRAMIDE HYDROCHLORIDE
  6. ISORDIL [Concomitant]
     Active Substance: ISOSORBIDE DINITRATE
  7. PLAVIX [Concomitant]
     Active Substance: CLOPIDOGREL BISULFATE
  8. TEMAZEPAM. [Concomitant]
     Active Substance: TEMAZEPAM
  9. RANEXA [Concomitant]
     Active Substance: RANOLAZINE

REACTIONS (4)
  - Upper respiratory tract infection [Not Recovered/Not Resolved]
  - Oedema [Not Recovered/Not Resolved]
  - Swelling [Not Recovered/Not Resolved]
  - Dyspnoea [Not Recovered/Not Resolved]

NARRATIVE: CASE EVENT DATE: 20081128
